FAERS Safety Report 13101460 (Version 2)
Quarter: 2017Q1

REPORT INFORMATION
  Report Type: Spontaneous
  Country: US (occurrence: US)
  Receive Date: 20170110
  Receipt Date: 20170116
  Transmission Date: 20170428
  Serious: No
  Sender: FDA-Public Use
  Company Number: US-GLAXOSMITHKLINE-US2017GSK001596

PATIENT
  Sex: Female

DRUGS (1)
  1. BENLYSTA [Suspect]
     Active Substance: BELIMUMAB
     Indication: SYSTEMIC LUPUS ERYTHEMATOSUS
     Dosage: UNK, U
     Dates: start: 201606

REACTIONS (7)
  - Nasopharyngitis [Unknown]
  - Influenza [Unknown]
  - Pyrexia [Unknown]
  - Drug dose omission [Unknown]
  - Anxiety [Unknown]
  - Blood disorder [Unknown]
  - Malaise [Unknown]
